FAERS Safety Report 23164053 (Version 2)
Quarter: 2023Q4

REPORT INFORMATION
  Report Type: Report from Study
  Country: AT (occurrence: AT)
  Receive Date: 20231109
  Receipt Date: 20231218
  Transmission Date: 20240110
  Serious: Yes (Hospitalization)
  Sender: FDA-Public Use
  Company Number: None

PATIENT
  Age: 35 Year
  Sex: Female
  Weight: 62 kg

DRUGS (48)
  1. CAPECITABINE [Suspect]
     Active Substance: CAPECITABINE
     Indication: HER2 positive breast cancer
     Dates: start: 20220623, end: 20230612
  2. LAPATINIB [Suspect]
     Active Substance: LAPATINIB
     Indication: HER2 positive breast cancer
     Dosage: MOST RECENT DOSE PRIOR TO AE 28/OCT/2020
     Dates: start: 20201028, end: 20210709
  3. TAXOTERE [Suspect]
     Active Substance: DOCETAXEL
     Indication: HER2 positive breast cancer
     Dates: start: 20170621, end: 20171115
  4. AROMASIN [Suspect]
     Active Substance: EXEMESTANE
     Indication: HER2 positive breast cancer
     Dates: start: 20200120
  5. HERCEPTIN [Suspect]
     Active Substance: TRASTUZUMAB
     Indication: HER2 positive breast cancer
     Dates: start: 20170712, end: 20171115
  6. FEMARA [Suspect]
     Active Substance: LETROZOLE
     Indication: HER2 positive breast cancer
     Dosage: MOST RECENT DOSE PRIOR TO AE 20/JAN/2020
     Dates: start: 20180108
  7. XGEVA [Suspect]
     Active Substance: DENOSUMAB
     Indication: HER2 positive breast cancer
     Dates: start: 20170621
  8. TUCATINIB [Suspect]
     Active Substance: TUCATINIB
     Indication: HER2 positive breast cancer
     Dates: start: 20220623, end: 20230612
  9. TRASTUZUMAB DERUXTECAN [Suspect]
     Active Substance: TRASTUZUMAB DERUXTECAN
     Indication: HER2 positive breast cancer
     Dates: start: 20210722, end: 20220603
  10. PERJETA [Suspect]
     Active Substance: PERTUZUMAB
     Indication: HER2 positive breast cancer
     Dates: start: 20170712, end: 20171115
  11. GOSERELIN [Suspect]
     Active Substance: GOSERELIN
     Indication: HER2 positive breast cancer
     Dates: start: 20180108
  12. KADCYLA [Suspect]
     Active Substance: ADO-TRASTUZUMAB EMTANSINE
     Indication: HER2 positive breast cancer
     Dates: start: 20200323, end: 20201006
  13. HERCEPTIN [Suspect]
     Active Substance: TRASTUZUMAB
     Indication: HER2 positive breast cancer
     Dates: start: 20220623
  14. CAPECITABINE [Suspect]
     Active Substance: CAPECITABINE
     Indication: HER2 positive breast cancer
     Dates: start: 20220623, end: 20230612
  15. AMOXICILLIN\CLAVULANIC ACID [Concomitant]
     Active Substance: AMOXICILLIN\CLAVULANIC ACID
  16. ESOMEPRAZOLE [Concomitant]
     Active Substance: ESOMEPRAZOLE
     Dosage: ONGOING
     Dates: start: 20170621
  17. ZOFRAN [Concomitant]
     Active Substance: ONDANSETRON HYDROCHLORIDE
  18. DEXABENE [Concomitant]
  19. NOVALGIN [Concomitant]
     Dosage: ONGOING
     Dates: start: 20180515
  20. LEVETIRACETAM [Concomitant]
     Active Substance: LEVETIRACETAM
     Dosage: ONGOING CHECKED
     Dates: start: 20200102
  21. KETOPROFEN [Concomitant]
     Active Substance: KETOPROFEN
  22. DIPHENHYDRAMINE HYDROCHLORIDE [Concomitant]
     Active Substance: DIPHENHYDRAMINE HYDROCHLORIDE
  23. ACETAMINOPHEN [Concomitant]
     Active Substance: ACETAMINOPHEN
  24. METHYLPREDNISOLONE ACEPONATE [Concomitant]
     Active Substance: METHYLPREDNISOLONE ACEPONATE
  25. VITAMINS WITH MINERALS [Concomitant]
     Active Substance: MINERALS\VITAMINS
  26. LOPERAMIDE HYDROCHLORIDE [Concomitant]
     Active Substance: LOPERAMIDE HYDROCHLORIDE
     Dosage: ONGOING  CHECKED
     Dates: start: 20201028
  27. GOSERELIN [Concomitant]
     Active Substance: GOSERELIN
     Dosage: ONGOING
     Dates: start: 20180129
  28. ESOMEPRAZOLE [Concomitant]
     Active Substance: ESOMEPRAZOLE
     Dosage: ONGOING CHECKED
     Dates: start: 20191230
  29. FENTANYL [Concomitant]
     Active Substance: FENTANYL\FENTANYL CITRATE
  30. CLOBAZAM [Concomitant]
     Active Substance: CLOBAZAM
  31. PROPOFOL [Concomitant]
     Active Substance: PROPOFOL
  32. LIPEGFILGRASTIM [Concomitant]
     Active Substance: LIPEGFILGRASTIM
  33. APREPITANT [Concomitant]
     Active Substance: APREPITANT
     Dosage: ONGOING
     Dates: start: 20210812
  34. DEXAGENTA [Concomitant]
     Indication: Cataract
     Dosage: ONGOING
     Dates: start: 20230511, end: 20230518
  35. PIRITRAMIDE [Concomitant]
     Active Substance: PIRITRAMIDE
  36. KETANEST [Concomitant]
  37. ASCORBIC ACID\CALCIUM PHOSPHATE\CHOLECALCIFEROL\CITRIC ACID MONOHYDRAT [Concomitant]
     Active Substance: ASCORBIC ACID\CALCIUM PHOSPHATE\CHOLECALCIFEROL\CITRIC ACID MONOHYDRATE
     Dosage: ONGOING
     Dates: start: 20171025
  38. LETROZOLE [Concomitant]
     Active Substance: LETROZOLE
  39. DEXAMETHASONE [Concomitant]
     Active Substance: DEXAMETHASONE
     Indication: Syncope
     Dosage: ONGOING
     Dates: start: 20201111
  40. ROCURONIUM BROMIDE [Concomitant]
     Active Substance: ROCURONIUM BROMIDE
  41. LAPATINIB [Suspect]
     Active Substance: LAPATINIB
     Indication: HER2 positive breast cancer
     Dosage: MOST RECENT DOSE PRIOR TO AE 28/OCT/2020
     Dates: start: 20230630
  42. GOSERELIN [Suspect]
     Active Substance: GOSERELIN
     Indication: HER2 positive breast cancer
     Dates: start: 20180129
  43. HERCEPTIN [Suspect]
     Active Substance: TRASTUZUMAB
     Indication: HER2 positive breast cancer
     Dates: start: 20201028, end: 20210709
  44. KADCYLA [Suspect]
     Active Substance: ADO-TRASTUZUMAB EMTANSINE
     Indication: HER2 positive breast cancer
     Dates: start: 20200120, end: 20200302
  45. HERCEPTIN [Suspect]
     Active Substance: TRASTUZUMAB
     Indication: HER2 positive breast cancer
     Dosage: MOST RECENT DOSE PRIOR TO THE EVENT: 23/JUN/2022
     Dates: start: 20170621, end: 20170621
  46. HERCEPTIN [Suspect]
     Active Substance: TRASTUZUMAB
     Indication: HER2 positive breast cancer
     Dates: start: 20180108, end: 20191127
  47. PERJETA [Suspect]
     Active Substance: PERTUZUMAB
     Indication: HER2 positive breast cancer
     Dates: start: 20170621, end: 20170621
  48. PERJETA [Suspect]
     Active Substance: PERTUZUMAB
     Indication: HER2 positive breast cancer
     Dates: start: 20180108, end: 20191127

REACTIONS (2)
  - Epilepsy [Recovered/Resolved]
  - Pneumonia [Recovered/Resolved]

NARRATIVE: CASE EVENT DATE: 20230505
